FAERS Safety Report 5052478-0 (Version None)
Quarter: 2006Q3

REPORT INFORMATION
  Report Type: 
  Country: None (occurrence: None)
  Receive Date: 20060717
  Receipt Date: 20060706
  Transmission Date: 20061208
  Serious: Yes (Death, Other)
  Sender: FDA-Public Use
  Company Number: GXKR2006TR03846

PATIENT
  Age: 72 Year
  Sex: Female

DRUGS (3)
  1. CAPECITABINE [Suspect]
     Indication: METASTASES TO LUNG
     Dates: start: 20041201
  2. DOCETAXEL (NGX) [Suspect]
     Indication: METASTASES TO LUNG
     Dates: start: 20041201
  3. ZOLEDRONIC ACID [Suspect]
     Indication: METASTASES TO BONE
     Dosage: UNK, UNK
     Route: 065
     Dates: start: 20041201

REACTIONS (5)
  - DIARRHOEA [None]
  - PALMAR-PLANTAR ERYTHRODYSAESTHESIA SYNDROME [None]
  - PANCYTOPENIA [None]
  - SEPTIC SHOCK [None]
  - SKIN LESION [None]
